FAERS Safety Report 10346832 (Version 1)
Quarter: 2014Q3

REPORT INFORMATION
  Report Type: Spontaneous
  Country: US (occurrence: None)
  Receive Date: 20140725
  Receipt Date: 20140725
  Transmission Date: 20150326
  Serious: Yes (Hospitalization)
  Sender: FDA-Public Use
  Company Number: None

PATIENT
  Age: 94 Year
  Sex: Male
  Weight: 79.5 kg

DRUGS (1)
  1. LORAZEPAM. [Suspect]
     Active Substance: LORAZEPAM
     Indication: AGITATION
     Route: 048
     Dates: start: 20140610, end: 20140610

REACTIONS (4)
  - Agitation [None]
  - Hallucination, auditory [None]
  - Feeling abnormal [None]
  - Moaning [None]

NARRATIVE: CASE EVENT DATE: 20140610
